FAERS Safety Report 5625499-4 (Version None)
Quarter: 2008Q1

REPORT INFORMATION
  Report Type: 
  Country: None (occurrence: None)
  Receive Date: 20080207
  Receipt Date: 20080127
  Transmission Date: 20080703
  Serious: Yes (Other)
  Sender: FDA-Public Use
  Company Number: CHPA2008CA01665

PATIENT
  Age: 51 Year
  Sex: Male
  Weight: 54 kg

DRUGS (5)
  1. BUCKLEY'S DM (NCH)(DEXTROMETHORPHAN HYDROBROMIDE) SYRUP [Suspect]
     Indication: COUGH
     Dosage: 2 TSP, ONCE/SINGLE, ORAL
     Route: 048
     Dates: start: 20080126, end: 20080126
  2. ACETAMINOPHEN [Suspect]
  3. CENTRUM(MINERALS NOS, VITAMINS NOS) [Suspect]
  4. PROTEGRA(ASCORBIC ACID, BETACAROTENE, COPPER, MANGANESE SELENIUM, TOCO [Suspect]
  5. ASCORBIC ACID [Suspect]

REACTIONS (3)
  - ASTHENIA [None]
  - CHEST DISCOMFORT [None]
  - HEART RATE INCREASED [None]
